FAERS Safety Report 7879260-0 (Version None)
Quarter: 2011Q4

REPORT INFORMATION
  Report Type: 
  Country: None (occurrence: None)
  Receive Date: 20111101
  Receipt Date: 20111012
  Transmission Date: 20120403
  Serious: Yes (Hospitalization)
  Sender: FDA-Public Use
  Company Number: CA-JNJFOC-20111012608

PATIENT
  Sex: Female
  Weight: 79.9 kg

DRUGS (8)
  1. NITROGLYCERIN [Concomitant]
  2. RABEPRAZOLE SODIUM [Concomitant]
  3. METOPROLOL TARTRATE [Concomitant]
  4. HYDROCHLOROTHIAZIDE [Concomitant]
  5. REMICADE [Suspect]
     Indication: CROHN'S DISEASE
     Dates: start: 20080101
  6. RAMIPRIL [Concomitant]
  7. LOMOTIL [Concomitant]
  8. PLAVIX [Concomitant]

REACTIONS (1)
  - INTESTINAL MASS [None]
